FAERS Safety Report 6826214-9 (Version None)
Quarter: 2010Q3

REPORT INFORMATION
  Report Type: 
  Country: None (occurrence: None)
  Receive Date: 20100708
  Receipt Date: 20100708
  Transmission Date: 20110219
  Serious: Yes (Hospitalization)
  Sender: FDA-Public Use
  Company Number: None

PATIENT
  Age: 87 Year
  Sex: Male

DRUGS (2)
  1. WARFARIN SODIUM [Suspect]
     Indication: ATRIAL FIBRILLATION
     Dosage: 7.5 MG EVERY DAY PO
     Route: 048
     Dates: start: 20011206
  2. METRONIDAZOLE [Suspect]
     Indication: CLOSTRIDIUM DIFFICILE COLITIS
     Dosage: 500 MG TID PO
     Route: 048
     Dates: start: 20100408, end: 20100416

REACTIONS (4)
  - BLISTER INFECTED [None]
  - CLOSTRIDIUM DIFFICILE COLITIS [None]
  - INTERNATIONAL NORMALISED RATIO INCREASED [None]
  - NO THERAPEUTIC RESPONSE [None]
